FAERS Safety Report 19389662 (Version 3)
Quarter: 2021Q3

REPORT INFORMATION
  Report Type: Report from Study
  Country: US (occurrence: US)
  Receive Date: 20210608
  Receipt Date: 20210708
  Transmission Date: 20211014
  Serious: Yes (Hospitalization, Other)
  Sender: FDA-Public Use
  Company Number: US-GILEAD-2021-0534634

PATIENT
  Age: 71 Year
  Sex: Female

DRUGS (2)
  1. AZTREONAM LYSINE [Suspect]
     Active Substance: AZTREONAM LYSINE
     Indication: CYSTIC FIBROSIS LUNG
     Dosage: 1 DOSAGE FORM, TID, 28 DAYS ON AND 28 DAYS OFF
     Route: 055
     Dates: start: 20180124
  2. HYPERSAL [Concomitant]
     Active Substance: SODIUM CHLORIDE

REACTIONS (5)
  - Haemoptysis [Not Recovered/Not Resolved]
  - Pneumonia [Not Recovered/Not Resolved]
  - Product use issue [Unknown]
  - Pharyngeal disorder [Unknown]
  - COVID-19 [Unknown]

NARRATIVE: CASE EVENT DATE: 20210517
